FAERS Safety Report 17741002 (Version 1)
Quarter: 2020Q2

REPORT INFORMATION
  Report Type: Report from Study
  Country: AU (occurrence: AU)
  Receive Date: 20200504
  Receipt Date: 20200504
  Transmission Date: 20200714
  Serious: Yes (Other)
  Sender: FDA-Public Use
  Company Number: NVSC2020AU119027

PATIENT
  Age: 68 Year
  Sex: Female

DRUGS (6)
  1. SANDOSTATIN LAR DEPOT [Suspect]
     Active Substance: OCTREOTIDE ACETATE
     Indication: CARCINOID SYNDROME
     Dosage: 30 MG, QMO (Q4W)
     Route: 030
  2. NITROLINGUAL [Concomitant]
     Active Substance: NITROGLYCERIN
     Indication: PRODUCT USED FOR UNKNOWN INDICATION
     Dosage: UNK  400 MCG PER DOSE 1 DOSE PUFF
     Route: 065
  3. ASPIRIN. [Concomitant]
     Active Substance: ASPIRIN
     Indication: PRODUCT USED FOR UNKNOWN INDICATION
     Dosage: 1 DF, QD
     Route: 065
  4. NEO B12 [Concomitant]
     Active Substance: HYDROXOCOBALAMIN
     Indication: PRODUCT USED FOR UNKNOWN INDICATION
     Dosage: 1 ML, Q3H
     Route: 065
  5. ATACAND [Concomitant]
     Active Substance: CANDESARTAN CILEXETIL
     Indication: PRODUCT USED FOR UNKNOWN INDICATION
     Dosage: 1 DF, QD
     Route: 065
  6. GLYCERYL TRINITRATE [Concomitant]
     Active Substance: NITROGLYCERIN
     Indication: PRODUCT USED FOR UNKNOWN INDICATION
     Route: 065

REACTIONS (11)
  - Intervertebral disc protrusion [Unknown]
  - Osteoarthritis [Unknown]
  - Diverticulum [Unknown]
  - Macular degeneration [Unknown]
  - Retinal haemorrhage [Unknown]
  - Metastases to peritoneum [Unknown]
  - Malignant melanoma [Unknown]
  - Spondylolisthesis [Unknown]
  - Cataract [Unknown]
  - Sciatica [Unknown]
  - Radiculopathy [Unknown]

NARRATIVE: CASE EVENT DATE: 20061207
